FAERS Safety Report 8775310 (Version 1)
Quarter: 2012Q4

REPORT INFORMATION
  Report Type: 
  Country: US (occurrence: US)
  Receive Date: 20120910
  Receipt Date: 20120910
  Transmission Date: 20130627
  Serious: Yes (Hospitalization)
  Sender: FDA-Public Use
  Company Number: US-AMGEN-USASP2012056733

PATIENT
  Age: 61 Year
  Sex: Female
  Weight: 86.17 kg

DRUGS (1)
  1. PROCRIT [Suspect]
     Indication: COLON CANCER
     Dosage: UNK UNK, q2wk
     Dates: start: 1992

REACTIONS (2)
  - Colon operation [Unknown]
  - Red blood cell count decreased [Recovered/Resolved]
